FAERS Safety Report 9722677 (Version 1)
Quarter: 2013Q2

REPORT INFORMATION
  Report Type: Spontaneous
  Country: US (occurrence: None)
  Receive Date: 20130614
  Receipt Date: 20130614
  Transmission Date: 20140414
  Serious: Yes (Hospitalization)
  Sender: FDA-Public Use
  Company Number: 2013-0001

PATIENT
  Age: 71 Year
  Sex: Female

DRUGS (7)
  1. SODIUM THIOSULFATE [Suspect]
     Indication: CALCIPHYLAXIS
     Dosage: 25G IV DAILY, 11 DAYS
     Route: 042
  2. AMLODIPINE [Concomitant]
  3. CARVEDILOL [Concomitant]
  4. CLOPIDOGREL [Concomitant]
  5. SIMVASTATIN [Concomitant]
  6. INSULIN [Concomitant]
  7. CINACALCET [Concomitant]

REACTIONS (6)
  - Cardiac arrest [None]
  - Anion gap increased [None]
  - Unresponsive to stimuli [None]
  - Depressed level of consciousness [None]
  - Hypoxia [None]
  - Haemodialysis [None]
